FAERS Safety Report 8515688 (Version 2)
Quarter: 2012Q4

REPORT INFORMATION
  Report Type: 
  Country: US (occurrence: US)
  Receive Date: 20120417
  Receipt Date: 20120912
  Transmission Date: 20130627
  Serious: Yes (Other)
  Sender: FDA-Public Use
  Company Number: US-CELGENEUS-163-21880-12041083

PATIENT

DRUGS (9)
  1. THALOMID [Suspect]
     Indication: MULTIPLE MYELOMA
     Route: 048
  2. DEXAMETHASONE [Suspect]
     Indication: MULTIPLE MYELOMA
  3. VELCADE [Suspect]
     Indication: MULTIPLE MYELOMA
  4. CISPLATIN [Suspect]
     Indication: MULTIPLE MYELOMA
  5. ADRIAMYCIN [Suspect]
     Indication: MULTIPLE MYELOMA
  6. ETOPOSIDE [Suspect]
     Indication: MULTIPLE MYELOMA
  7. CYCLOPHOSPHAMIDE [Suspect]
     Indication: MULTIPLE MYELOMA
  8. MELPHALAN [Suspect]
     Indication: MULTIPLE MYELOMA
  9. INTERFERON [Suspect]
     Indication: MULTIPLE MYELOMA

REACTIONS (12)
  - Acute lymphocytic leukaemia [Unknown]
  - Acute myeloid leukaemia [Unknown]
  - Non-Hodgkin^s lymphoma [Unknown]
  - Myelodysplastic syndrome [Unknown]
  - Bladder cancer [Unknown]
  - Breast cancer [Unknown]
  - Colon cancer [Unknown]
  - Skin cancer [Unknown]
  - Prostate cancer [Unknown]
  - Renal cancer [Unknown]
  - Thyroid cancer [Unknown]
  - Lung neoplasm malignant [Unknown]
